FAERS Safety Report 13554019 (Version 1)
Quarter: 2017Q2

REPORT INFORMATION
  Report Type: Spontaneous
  Country: ES (occurrence: ES)
  Receive Date: 20170517
  Receipt Date: 20170517
  Transmission Date: 20170830
  Serious: Yes (Hospitalization)
  Sender: FDA-Public Use
  Company Number: ES-TEVA-767291ISR

PATIENT
  Age: 3 Year
  Sex: Male

DRUGS (8)
  1. CLEXANE 20 MG (2000UI) SOLUCION INYECTABLE EN JERINGA PRECARGADA, 10 J [Concomitant]
     Indication: THROMBOSIS PROPHYLAXIS
     Dosage: 16.3 MILLIGRAM DAILY;
     Route: 058
     Dates: start: 20170207, end: 20170306
  2. SEPTRIN PEDIATRICO 8MG/40MG/ML SUSPENSION ORAL, 1 FRASCO DE 100 ML [Concomitant]
     Indication: OPPORTUNISTIC INFECTION PROPHYLAXIS
     Dosage: 10 ML DAILY;
     Route: 048
     Dates: start: 20170201
  3. METILPREDNISOLONA NORMON 20MG POLVO Y DISOLVENTE PARA SOLUCION INYECTA [Suspect]
     Active Substance: METHYLPREDNISOLONE
     Indication: ACUTE LYMPHOCYTIC LEUKAEMIA
     Route: 042
     Dates: start: 20170228, end: 20170307
  4. ZOVIRAX 400MG/5 ML SUSPENSION ORAL, 1FRASCO DE 100 ML [Concomitant]
     Indication: OPPORTUNISTIC INFECTION PROPHYLAXIS
     Dosage: 2.5 ML DAILY;
     Route: 048
     Dates: start: 20170201
  5. DAUNOBLASTINA 20MG POLVO Y DISOLVENTE PARA SOLUCION INYECTABLE, 1 VIAL [Suspect]
     Active Substance: DAUNORUBICIN HYDROCHLORIDE
     Indication: ACUTE LYMPHOCYTIC LEUKAEMIA
     Dosage: 21 MILLIGRAM DAILY;
     Route: 042
     Dates: start: 20170302, end: 20170302
  6. MERCAPTOPURINA [Suspect]
     Active Substance: MERCAPTOPURINE
     Indication: ACUTE LYMPHOCYTIC LEUKAEMIA
     Dosage: 36 MILLIGRAM DAILY;
     Route: 048
     Dates: start: 20170309, end: 20170313
  7. VINCRISTINA TEVA 1 MG/ML SOLUCION INYECTABLE EFG, 1 VIAL DE 1 ML [Suspect]
     Active Substance: VINCRISTINE SULFATE
     Indication: ACUTE LYMPHOCYTIC LEUKAEMIA
     Dosage: 1.5 MILLIGRAM DAILY;
     Route: 041
     Dates: start: 20170302, end: 20170302
  8. ONCASPAR [Suspect]
     Active Substance: PEGASPARGASE
     Indication: ACUTE LYMPHOCYTIC LEUKAEMIA
     Dosage: 703 IU (INTERNATIONAL UNIT) DAILY;
     Route: 030

REACTIONS (1)
  - Febrile neutropenia [Recovered/Resolved]

NARRATIVE: CASE EVENT DATE: 20170313
